FAERS Safety Report 6312832-3 (Version None)
Quarter: 2009Q3

REPORT INFORMATION
  Report Type: 
  Country: None (occurrence: None)
  Receive Date: 20090818
  Receipt Date: 20090720
  Transmission Date: 20100115
  Serious: Yes (Hospitalization)
  Sender: FDA-Public Use
  Company Number: RS-NOVOPROD-289015

PATIENT

DRUGS (2)
  1. NORDITROPIN NORDIFLEX [Suspect]
     Indication: GROWTH HORMONE DEFICIENCY
     Dosage: .875 MG, QD
     Route: 058
     Dates: start: 20080229
  2. THYROXIN-NATRIUM [Concomitant]
     Indication: CONGENITAL HYPOTHYROIDISM
     Dosage: 75 UG, QD
     Route: 048
     Dates: start: 19990720

REACTIONS (1)
  - FEBRILE CONVULSION [None]
